FAERS Safety Report 9489952 (Version 1)
Quarter: 2013Q3

REPORT INFORMATION
  Report Type: Spontaneous
  Country: US (occurrence: US)
  Receive Date: 20130829
  Receipt Date: 20130829
  Transmission Date: 20140515
  Serious: Yes (Other)
  Sender: FDA-Public Use
  Company Number: CHPA2013US013413

PATIENT
  Age: 29 Year
  Sex: Female

DRUGS (2)
  1. GAS-X CHEWABLE TABLETS UNKNOWN [Suspect]
     Indication: GASTROOESOPHAGEAL REFLUX DISEASE
     Dosage: 1-2 DF; PRN
     Route: 048
  2. GAS-X UNKNOWN THIN STRIP [Suspect]
     Indication: GASTROOESOPHAGEAL REFLUX DISEASE
     Dosage: 3-4 DF; PRN

REACTIONS (7)
  - Temporomandibular joint syndrome [Recovered/Resolved]
  - Fibromyalgia [Not Recovered/Not Resolved]
  - Joint dislocation [Not Recovered/Not Resolved]
  - Migraine [Not Recovered/Not Resolved]
  - Arthritis [Not Recovered/Not Resolved]
  - Off label use [Unknown]
  - Drug ineffective for unapproved indication [Unknown]
